FAERS Safety Report 7622606-9 (Version None)
Quarter: 2011Q3

REPORT INFORMATION
  Report Type: 
  Country: None (occurrence: None)
  Receive Date: 20110719
  Receipt Date: 20110719
  Transmission Date: 20111222
  Serious: Yes (Life-Threatening)
  Sender: FDA-Public Use
  Company Number: None

PATIENT
  Age: 85 Year
  Sex: Male
  Weight: 67.586 kg

DRUGS (1)
  1. TAMSULOSIN HCL [Suspect]
     Indication: URINARY TRACT DISORDER
     Dosage: 0.4MG DAILY PO
     Route: 048
     Dates: start: 20110323, end: 20110330

REACTIONS (5)
  - COGNITIVE DISORDER [None]
  - DYSPNOEA [None]
  - SPEECH DISORDER [None]
  - DIZZINESS [None]
  - THINKING ABNORMAL [None]
